FAERS Safety Report 4524490-9 (Version None)
Quarter: 2004Q4

REPORT INFORMATION
  Report Type: 
  Country: None (occurrence: None)
  Receive Date: 20041117
  Receipt Date: 20031121
  Transmission Date: 20050328
  Serious: Yes (Other)
  Sender: FDA-Public Use
  Company Number: US-JNJFOC-20031104654

PATIENT
  Age: 68 Year
  Sex: Male
  Weight: 73.4827 kg

DRUGS (3)
  1. LEVAQUIN [Suspect]
     Indication: LUNG NEOPLASM MALIGNANT
     Dosage: 500 MG, 1 IN 1 DAY
     Dates: start: 20031118, end: 20031118
  2. LEVAQUIN [Suspect]
     Indication: PNEUMONIA
     Dosage: 500 MG, 1 IN 1 DAY
     Dates: start: 20031118, end: 20031118
  3. DIFLUCAN [Concomitant]

REACTIONS (2)
  - HYPERSENSITIVITY [None]
  - INSOMNIA [None]
